FAERS Safety Report 8141624-8 (Version None)
Quarter: 2012Q1

REPORT INFORMATION
  Report Type: 
  Country: None (occurrence: None)
  Receive Date: 20120216
  Receipt Date: 20120213
  Transmission Date: 20120608
  Serious: Yes (Other)
  Sender: FDA-Public Use
  Company Number: DE-JNJFOC-20111003790

PATIENT
  Sex: Male
  Weight: 96 kg

DRUGS (1)
  1. XARELTO [Suspect]
     Indication: HIP ARTHROPLASTY
     Route: 048
     Dates: start: 20110301, end: 20110504

REACTIONS (1)
  - LIVER FUNCTION TEST ABNORMAL [None]
